FAERS Safety Report 7933549-5 (Version None)
Quarter: 2011Q4

REPORT INFORMATION
  Report Type: 
  Country: None (occurrence: None)
  Receive Date: 20111122
  Receipt Date: 20111031
  Transmission Date: 20120403
  Serious: No
  Sender: FDA-Public Use
  Company Number: US-ROXANE LABORATORIES, INC.-2011-RO-01572RO

PATIENT
  Sex: Male
  Weight: 70 kg

DRUGS (6)
  1. PREDNISONE TAB [Suspect]
     Indication: GOUT
     Dosage: 10 MG
     Route: 048
     Dates: start: 20110905, end: 20110915
  2. ZOLPIDEM [Concomitant]
     Indication: INSOMNIA
     Route: 048
     Dates: start: 20100101
  3. COLCRYS [Suspect]
     Indication: GOUT
     Dosage: 1.2 MG
     Route: 048
     Dates: start: 20110912
  4. DIOVAN [Concomitant]
     Indication: HYPERTENSION
     Dosage: 160 MG
     Route: 048
  5. TOPROL-XL [Concomitant]
     Indication: HYPERTENSION
     Dosage: 50 MG
     Route: 048
  6. ALLOPURINOL [Concomitant]
     Indication: GOUT
     Dosage: 100 MG
     Route: 048
     Dates: start: 20110701

REACTIONS (4)
  - DRY MOUTH [None]
  - DIARRHOEA [None]
  - ABDOMINAL DISCOMFORT [None]
  - INSOMNIA [None]
